FAERS Safety Report 15169504 (Version 1)
Quarter: 2018Q3

REPORT INFORMATION
  Report Type: Spontaneous
  Country: IT (occurrence: IT)
  Receive Date: 20180720
  Receipt Date: 20180720
  Transmission Date: 20181010
  Serious: Yes (Hospitalization)
  Sender: FDA-Public Use
  Company Number: IT-TEVA-2018-IT-929135

PATIENT
  Age: 81 Year
  Sex: Female

DRUGS (6)
  1. LUCEN (ESOMEPRAZOLE) [Suspect]
     Active Substance: ESOMEPRAZOLE
     Dosage: 20 MILLIGRAM DAILY;
     Route: 048
  2. ATENOLOL. [Suspect]
     Active Substance: ATENOLOL
     Indication: HYPERTENSION
     Dosage: 50 MILLIGRAM DAILY;
     Route: 048
  3. MODURETIC 5?50 [Suspect]
     Active Substance: AMILORIDE HYDROCHLORIDE\HYDROCHLOROTHIAZIDE
     Indication: HYPERTENSION
     Route: 048
  4. APROVEL 150 MG TABLETS [Concomitant]
     Indication: HYPERTENSION
     Route: 048
  5. LORAZEPAM. [Suspect]
     Active Substance: LORAZEPAM
     Dosage: 1.25 MILLIGRAM DAILY;
     Route: 048
  6. IPERTEN 20 MG COMPRESSE [Concomitant]
     Indication: HYPERTENSION
     Route: 048

REACTIONS (2)
  - Syncope [Unknown]
  - Hyponatraemia [Unknown]

NARRATIVE: CASE EVENT DATE: 20180122
